FAERS Safety Report 18554261 (Version 1)
Quarter: 2020Q4

REPORT INFORMATION
  Report Type: Spontaneous
  Country: IT (occurrence: IT)
  Receive Date: 20201127
  Receipt Date: 20201127
  Transmission Date: 20210114
  Serious: Yes (Hospitalization)
  Sender: FDA-Public Use
  Company Number: IT-HIKMA PHARMACEUTICALS USA INC.-IT-H14001-20-52706

PATIENT
  Age: 38 Year
  Sex: Male
  Weight: 78 kg

DRUGS (7)
  1. METHOTREXATE. [Suspect]
     Active Substance: METHOTREXATE
     Indication: LEUKAEMIA
     Route: 042
     Dates: start: 20191129
  2. ACICLOVIR [Concomitant]
     Active Substance: ACYCLOVIR
     Indication: PRODUCT USED FOR UNKNOWN INDICATION
     Route: 048
     Dates: start: 20200616
  3. KEPPRA [Concomitant]
     Active Substance: LEVETIRACETAM
     Indication: PRODUCT USED FOR UNKNOWN INDICATION
     Route: 048
     Dates: start: 20200616
  4. CYTARABINE. [Suspect]
     Active Substance: CYTARABINE
     Indication: LEUKAEMIA
     Route: 042
     Dates: start: 20190929
  5. ZEFFIX [Concomitant]
     Active Substance: LAMIVUDINE
     Indication: PRODUCT USED FOR UNKNOWN INDICATION
     Route: 048
     Dates: start: 20200616
  6. BLINATUMOMAB [Suspect]
     Active Substance: BLINATUMOMAB
     Indication: LEUKAEMIA
     Route: 042
  7. BACTRIM [Concomitant]
     Active Substance: SULFAMETHOXAZOLE\TRIMETHOPRIM
     Indication: PRODUCT USED FOR UNKNOWN INDICATION
     Route: 048
     Dates: start: 20200616

REACTIONS (5)
  - Febrile neutropenia [Recovering/Resolving]
  - Pyrexia [Recovering/Resolving]
  - Chills [Recovering/Resolving]
  - Pancytopenia [Recovering/Resolving]
  - Thrombocytopenia [Recovering/Resolving]

NARRATIVE: CASE EVENT DATE: 20200809
